FAERS Safety Report 8307609-3 (Version None)
Quarter: 2012Q2

REPORT INFORMATION
  Report Type: 
  Country: None (occurrence: None)
  Receive Date: 20120424
  Receipt Date: 20120419
  Transmission Date: 20120825
  Serious: Yes (Death, Hospitalization)
  Sender: FDA-Public Use
  Company Number: ES-PFIZER INC-2012097045

PATIENT
  Age: 17 Year
  Sex: Female

DRUGS (1)
  1. VORICONAZOLE [Suspect]
     Indication: ASPERGILLOSIS
     Dosage: UNK
     Route: 042
     Dates: start: 20110121, end: 20110125

REACTIONS (2)
  - COMPLICATIONS OF TRANSPLANT SURGERY [None]
  - STEM CELL TRANSPLANT [None]
